FAERS Safety Report 11196932 (Version 1)
Quarter: 2015Q2

REPORT INFORMATION
  Report Type: Spontaneous
  Country: IT (occurrence: IT)
  Receive Date: 20150617
  Receipt Date: 20150617
  Transmission Date: 20150821
  Serious: Yes (Other)
  Sender: FDA-Public Use
  Company Number: IT-SA-2015SA083412

PATIENT
  Age: 89 Year
  Sex: Male

DRUGS (7)
  1. CONGESCOR [Concomitant]
     Active Substance: BISOPROLOL
     Dosage: STRENGTH: 2.5MG DOSE:2 UNIT(S)
     Route: 048
  2. KANRENOL [Suspect]
     Active Substance: CANRENOATE POTASSIUM
     Indication: ANURIA
     Dosage: STRENGTH: 25MG DOSE:2 UNIT(S)
     Route: 048
     Dates: start: 20150101, end: 20150429
  3. ACETYLSALICYLIC ACID [Concomitant]
     Active Substance: ASPIRIN
     Route: 048
  4. KCL-RETARD [Concomitant]
     Active Substance: POTASSIUM CHLORIDE
     Dosage: DOSE:2 UNIT(S)
     Route: 048
  5. LASIX [Suspect]
     Active Substance: FUROSEMIDE
     Indication: ANURIA
     Dosage: DOSE:2 UNIT(S)
     Route: 048
     Dates: start: 20150101, end: 20150429
  6. METFORMIN [Concomitant]
     Active Substance: METFORMIN HYDROCHLORIDE
     Route: 048
  7. NITRO-DUR [Concomitant]
     Active Substance: NITROGLYCERIN
     Dosage: 10MG/DAY TRANSDERMAL PATCH DOSE:1 UNIT(S)
     Route: 062

REACTIONS (5)
  - Hypovolaemic shock [Recovering/Resolving]
  - Hypotension [Recovering/Resolving]
  - Acute kidney injury [Recovering/Resolving]
  - Hyperventilation [Recovering/Resolving]
  - Dehydration [Recovering/Resolving]

NARRATIVE: CASE EVENT DATE: 20150429
